FAERS Safety Report 5842939-6 (Version None)
Quarter: 2008Q3

REPORT INFORMATION
  Report Type: 
  Country: None (occurrence: None)
  Receive Date: 20080811
  Receipt Date: 20080728
  Transmission Date: 20090109
  Serious: Yes (Other)
  Sender: FDA-Public Use
  Company Number: CHPA2008US12898

PATIENT
  Age: 44 Year
  Sex: Female

DRUGS (4)
  1. EX-LAX MAX STR LAX PILLS SENNA (NCH) (SENNA GLYCOSIDES (CA SALTS OF PU [Suspect]
     Indication: CONSTIPATION
     Dosage: 50 MG, QHS, ORAL
     Route: 048
     Dates: start: 20080101
  2. EX-LAX MAX STR LAX PILLS SENNA (NCH) (SENNA GLYCOSIDES (CA SALTS OF PU [Suspect]
     Indication: WEIGHT CONTROL
     Dosage: 50 MG, QHS, ORAL
     Route: 048
     Dates: start: 20080101
  3. LIPITOR [Concomitant]
  4. AMBIEN [Concomitant]

REACTIONS (6)
  - ASTHENIA [None]
  - DIZZINESS [None]
  - DRUG TOLERANCE [None]
  - INTENTIONAL DRUG MISUSE [None]
  - NAUSEA [None]
  - SELF-MEDICATION [None]
